FAERS Safety Report 23414289 (Version 3)
Quarter: 2024Q4

REPORT INFORMATION
  Report Type: Spontaneous
  Country: CA (occurrence: CA)
  Receive Date: 20240118
  Receipt Date: 20241024
  Transmission Date: 20250115
  Serious: Yes (Life-Threatening, Hospitalization, Other)
  Sender: CHEPLAPHARM
  Company Number: CA-ELI_LILLY_AND_COMPANY-CA202401003097

PATIENT
  Age: 3 Decade
  Sex: Male

DRUGS (78)
  1. OLANZAPINE [Suspect]
     Active Substance: OLANZAPINE
     Indication: Neuralgia
     Dosage: DAILY DOSE: 2.5 MILLIGRAM
  2. OLANZAPINE [Suspect]
     Active Substance: OLANZAPINE
     Indication: Guillain-Barre syndrome
     Dosage: DAILY DOSE: 2.5 MILLIGRAM
  3. OLANZAPINE [Suspect]
     Active Substance: OLANZAPINE
     Indication: Neuralgia
     Dosage: DAILY DOSE: 3 MILLIGRAM
  4. OLANZAPINE [Suspect]
     Active Substance: OLANZAPINE
     Indication: Guillain-Barre syndrome
     Dosage: DAILY DOSE: 3 MILLIGRAM
  5. ZOPICLONE [Suspect]
     Active Substance: ZOPICLONE
     Indication: Guillain-Barre syndrome
  6. ZOPICLONE [Suspect]
     Active Substance: ZOPICLONE
     Indication: Neuralgia
  7. ACETAMINOPHEN [Suspect]
     Active Substance: ACETAMINOPHEN
     Indication: Guillain-Barre syndrome
     Dosage: DAILY DOSE: 3900 MILLIGRAM
  8. ACETAMINOPHEN [Suspect]
     Active Substance: ACETAMINOPHEN
     Indication: Pain
     Dosage: DAILY DOSE: 3900 MILLIGRAM
  9. ACETAMINOPHEN [Suspect]
     Active Substance: ACETAMINOPHEN
     Indication: Neuralgia
     Dosage: DAILY DOSE: 3900 MILLIGRAM
  10. ACETAMINOPHEN [Suspect]
     Active Substance: ACETAMINOPHEN
     Indication: Guillain-Barre syndrome
     Dosage: DAILY DOSE: 2600 MILLIGRAM
  11. ACETAMINOPHEN [Suspect]
     Active Substance: ACETAMINOPHEN
     Indication: Pain
     Dosage: DAILY DOSE: 2600 MILLIGRAM
  12. ACETAMINOPHEN [Suspect]
     Active Substance: ACETAMINOPHEN
     Indication: Neuralgia
     Dosage: DAILY DOSE: 2600 MILLIGRAM
  13. DICLOFENAC [Suspect]
     Active Substance: DICLOFENAC
     Indication: Guillain-Barre syndrome
  14. DICLOFENAC [Suspect]
     Active Substance: DICLOFENAC
     Indication: Pain
  15. DICLOFENAC [Suspect]
     Active Substance: DICLOFENAC
     Indication: Neuralgia
  16. DILAUDID [Suspect]
     Active Substance: HYDROMORPHONE HYDROCHLORIDE
     Indication: Neuralgia
     Dosage: DAILY DOSE: 30 MILLIGRAM
     Route: 048
  17. DILAUDID [Suspect]
     Active Substance: HYDROMORPHONE HYDROCHLORIDE
     Indication: Guillain-Barre syndrome
     Dosage: DAILY DOSE: 30 MILLIGRAM
     Route: 048
  18. DILAUDID [Suspect]
     Active Substance: HYDROMORPHONE HYDROCHLORIDE
     Indication: Pain
     Dosage: DAILY DOSE: 30 MILLIGRAM
     Route: 048
  19. DILAUDID [Suspect]
     Active Substance: HYDROMORPHONE HYDROCHLORIDE
     Indication: Neuralgia
     Dosage: DAILY DOSE: 7 MILLIGRAM
  20. DILAUDID [Suspect]
     Active Substance: HYDROMORPHONE HYDROCHLORIDE
     Indication: Guillain-Barre syndrome
     Dosage: DAILY DOSE: 7 MILLIGRAM
  21. DILAUDID [Suspect]
     Active Substance: HYDROMORPHONE HYDROCHLORIDE
     Indication: Pain
     Dosage: DAILY DOSE: 7 MILLIGRAM
  22. DILAUDID [Suspect]
     Active Substance: HYDROMORPHONE HYDROCHLORIDE
     Indication: Neuralgia
     Route: 042
  23. DILAUDID [Suspect]
     Active Substance: HYDROMORPHONE HYDROCHLORIDE
     Indication: Guillain-Barre syndrome
     Route: 042
  24. DILAUDID [Suspect]
     Active Substance: HYDROMORPHONE HYDROCHLORIDE
     Indication: Pain
     Route: 042
  25. FENTANYL [Suspect]
     Active Substance: FENTANYL
     Indication: Guillain-Barre syndrome
  26. FENTANYL [Suspect]
     Active Substance: FENTANYL
     Indication: Neuralgia
  27. FENTANYL [Suspect]
     Active Substance: FENTANYL
     Indication: Pain
  28. FENTANYL [Suspect]
     Active Substance: FENTANYL
     Indication: Guillain-Barre syndrome
     Dosage: DAILY DOSE: 37.5 MILLIGRAM
  29. FENTANYL [Suspect]
     Active Substance: FENTANYL
     Indication: Neuralgia
     Dosage: DAILY DOSE: 37.5 MILLIGRAM
  30. FENTANYL [Suspect]
     Active Substance: FENTANYL
     Indication: Pain
     Dosage: DAILY DOSE: 37.5 MILLIGRAM
  31. GABAPENTIN [Suspect]
     Active Substance: GABAPENTIN
     Indication: Neuralgia
     Dosage: DAILY DOSE: 3600 MILLIGRAM
     Route: 048
  32. GABAPENTIN [Suspect]
     Active Substance: GABAPENTIN
     Indication: Guillain-Barre syndrome
     Dosage: DAILY DOSE: 3600 MILLIGRAM
     Route: 048
  33. GABAPENTIN [Suspect]
     Active Substance: GABAPENTIN
     Indication: Acute respiratory failure
     Dosage: DAILY DOSE: 3600 MILLIGRAM
     Route: 048
  34. GABAPENTIN [Suspect]
     Active Substance: GABAPENTIN
     Indication: Neuralgia
     Dosage: DAILY DOSE: 900 MILLIGRAM
  35. GABAPENTIN [Suspect]
     Active Substance: GABAPENTIN
     Indication: Guillain-Barre syndrome
     Dosage: DAILY DOSE: 900 MILLIGRAM
  36. GABAPENTIN [Suspect]
     Active Substance: GABAPENTIN
     Indication: Acute respiratory failure
     Dosage: DAILY DOSE: 900 MILLIGRAM
  37. GABAPENTIN [Suspect]
     Active Substance: GABAPENTIN
     Indication: Neuralgia
     Dosage: DAILY DOSE: 1800 MILLIGRAM
     Route: 048
  38. GABAPENTIN [Suspect]
     Active Substance: GABAPENTIN
     Indication: Guillain-Barre syndrome
     Dosage: DAILY DOSE: 1800 MILLIGRAM
     Route: 048
  39. GABAPENTIN [Suspect]
     Active Substance: GABAPENTIN
     Indication: Acute respiratory failure
     Dosage: DAILY DOSE: 1800 MILLIGRAM
     Route: 048
  40. GABAPENTIN [Suspect]
     Active Substance: GABAPENTIN
     Indication: Neuralgia
     Dosage: DAILY DOSE: 1200 MILLIGRAM
     Route: 048
  41. GABAPENTIN [Suspect]
     Active Substance: GABAPENTIN
     Indication: Guillain-Barre syndrome
     Dosage: DAILY DOSE: 1200 MILLIGRAM
     Route: 048
  42. GABAPENTIN [Suspect]
     Active Substance: GABAPENTIN
     Indication: Acute respiratory failure
     Dosage: DAILY DOSE: 1200 MILLIGRAM
     Route: 048
  43. GABAPENTIN [Suspect]
     Active Substance: GABAPENTIN
     Indication: Neuralgia
     Dosage: DAILY DOSE: 300 MILLIGRAM
  44. GABAPENTIN [Suspect]
     Active Substance: GABAPENTIN
     Indication: Guillain-Barre syndrome
     Dosage: DAILY DOSE: 300 MILLIGRAM
  45. GABAPENTIN [Suspect]
     Active Substance: GABAPENTIN
     Indication: Acute respiratory failure
     Dosage: DAILY DOSE: 300 MILLIGRAM
  46. GABAPENTIN [Suspect]
     Active Substance: GABAPENTIN
     Indication: Neuralgia
  47. GABAPENTIN [Suspect]
     Active Substance: GABAPENTIN
     Indication: Guillain-Barre syndrome
  48. GABAPENTIN [Suspect]
     Active Substance: GABAPENTIN
     Indication: Acute respiratory failure
  49. IBUPROFEN [Suspect]
     Active Substance: IBUPROFEN
     Indication: Guillain-Barre syndrome
     Dosage: DAILY DOSE: 1600 MILLIGRAM
  50. IBUPROFEN [Suspect]
     Active Substance: IBUPROFEN
     Indication: Neuralgia
     Dosage: DAILY DOSE: 1600 MILLIGRAM
  51. IBUPROFEN [Suspect]
     Active Substance: IBUPROFEN
     Indication: Acute respiratory failure
     Dosage: DAILY DOSE: 1600 MILLIGRAM
  52. KETAMINE [Suspect]
     Active Substance: KETAMINE
     Indication: Neuralgia
     Dosage: DAILY DOSE: 40 MILLIGRAM
  53. KETAMINE [Suspect]
     Active Substance: KETAMINE
     Indication: Guillain-Barre syndrome
     Dosage: DAILY DOSE: 40 MILLIGRAM
  54. KETAMINE [Suspect]
     Active Substance: KETAMINE
     Indication: Acute respiratory failure
     Dosage: DAILY DOSE: 40 MILLIGRAM
  55. KETAMINE [Suspect]
     Active Substance: KETAMINE
     Indication: Neuralgia
     Dosage: DAILY DOSE: 30 MILLIGRAM
     Route: 042
  56. KETAMINE [Suspect]
     Active Substance: KETAMINE
     Indication: Guillain-Barre syndrome
     Dosage: DAILY DOSE: 30 MILLIGRAM
     Route: 042
  57. KETAMINE [Suspect]
     Active Substance: KETAMINE
     Indication: Acute respiratory failure
     Dosage: DAILY DOSE: 30 MILLIGRAM
     Route: 042
  58. LIDOCAINE [Suspect]
     Active Substance: LIDOCAINE
     Indication: Neuralgia
  59. LIDOCAINE [Suspect]
     Active Substance: LIDOCAINE
     Indication: Guillain-Barre syndrome
  60. LIDOCAINE [Suspect]
     Active Substance: LIDOCAINE
     Indication: Pain
  61. NABILONE [Suspect]
     Active Substance: NABILONE
     Indication: Pain
     Dosage: DAILY DOSE: 2 MILLIGRAM
  62. NABILONE [Suspect]
     Active Substance: NABILONE
     Indication: Neuralgia
     Dosage: DAILY DOSE: 2 MILLIGRAM
  63. NABILONE [Suspect]
     Active Substance: NABILONE
     Indication: Guillain-Barre syndrome
     Dosage: DAILY DOSE: 2 MILLIGRAM
  64. NABILONE [Suspect]
     Active Substance: NABILONE
     Indication: Pain
     Dosage: DAILY DOSE: 6 MILLIGRAM
  65. NABILONE [Suspect]
     Active Substance: NABILONE
     Indication: Neuralgia
     Dosage: DAILY DOSE: 6 MILLIGRAM
  66. NABILONE [Suspect]
     Active Substance: NABILONE
     Indication: Guillain-Barre syndrome
     Dosage: DAILY DOSE: 6 MILLIGRAM
  67. NABILONE [Suspect]
     Active Substance: NABILONE
     Indication: Pain
     Route: 042
  68. NABILONE [Suspect]
     Active Substance: NABILONE
     Indication: Neuralgia
     Route: 042
  69. NABILONE [Suspect]
     Active Substance: NABILONE
     Indication: Guillain-Barre syndrome
     Route: 042
  70. VENLAFAXINE HYDROCHLORIDE [Suspect]
     Active Substance: VENLAFAXINE HYDROCHLORIDE
     Indication: Neuralgia
  71. VENLAFAXINE HYDROCHLORIDE [Suspect]
     Active Substance: VENLAFAXINE HYDROCHLORIDE
     Indication: Guillain-Barre syndrome
  72. HUMAN IMMUNOGLOBULIN G [Suspect]
     Active Substance: HUMAN IMMUNOGLOBULIN G
     Indication: Neuralgia
  73. HUMAN IMMUNOGLOBULIN G [Suspect]
     Active Substance: HUMAN IMMUNOGLOBULIN G
     Indication: Guillain-Barre syndrome
  74. PHENYTOIN [Suspect]
     Active Substance: PHENYTOIN
     Indication: Neuralgia
     Dosage: DAILY DOSE: 1500 MILLIGRAM
  75. PHENYTOIN [Suspect]
     Active Substance: PHENYTOIN
     Indication: Guillain-Barre syndrome
     Dosage: DAILY DOSE: 1500 MILLIGRAM
  76. BUPIVACAINE [Concomitant]
     Active Substance: BUPIVACAINE
     Indication: Neuralgia
  77. MORPHINE [Concomitant]
     Active Substance: MORPHINE
     Indication: Neuralgia
  78. NORTRIPTYLINE [Concomitant]
     Active Substance: NORTRIPTYLINE
     Indication: Neuralgia

REACTIONS (2)
  - Inspiratory capacity decreased [Unknown]
  - Off label use [Unknown]
